FAERS Safety Report 19979644 (Version 1)
Quarter: 2021Q4

REPORT INFORMATION
  Report Type: Report from Study
  Country: None (occurrence: CA)
  Receive Date: 20211020
  Receipt Date: 20211020
  Transmission Date: 20220303
  Serious: Yes (Hospitalization)
  Sender: FDA-Public Use
  Company Number: CA-ABBVIE-21K-028-3879015-00

PATIENT
  Age: 71 Year
  Sex: Female

DRUGS (2)
  1. RINVOQ [Suspect]
     Active Substance: UPADACITINIB
     Indication: Rheumatoid arthritis
     Route: 048
     Dates: start: 20210420, end: 2021
  2. RINVOQ [Suspect]
     Active Substance: UPADACITINIB
     Route: 048
     Dates: start: 2021

REACTIONS (10)
  - Peripheral swelling [Unknown]
  - Balance disorder [Recovering/Resolving]
  - Musculoskeletal disorder [Unknown]
  - Incorrect dose administered [Unknown]
  - Head injury [Unknown]
  - Fall [Unknown]
  - Peripheral swelling [Recovered/Resolved]
  - Bacterial infection [Unknown]
  - Muscle spasms [Recovered/Resolved]
  - Muscle spasms [Recovering/Resolving]

NARRATIVE: CASE EVENT DATE: 20210101
